FAERS Safety Report 7224397-2 (Version None)
Quarter: 2011Q1

REPORT INFORMATION
  Report Type: 
  Country: None (occurrence: None)
  Receive Date: 20110113
  Receipt Date: 20110106
  Transmission Date: 20110831
  Serious: No
  Sender: FDA-Public Use
  Company Number: US-JNJFOC-20110101339

PATIENT
  Sex: Male

DRUGS (5)
  1. ATIVAN [Concomitant]
     Indication: DEPRESSION
     Route: 048
  2. DURAGESIC-50 [Suspect]
     Indication: PRODUCT USED FOR UNKNOWN INDICATION
     Route: 062
  3. ATIVAN [Concomitant]
     Indication: ANXIETY
     Route: 048
  4. DURAGESIC-50 [Suspect]
     Route: 062
  5. AMITRIPTYLINE [Concomitant]
     Indication: SLEEP DISORDER
     Route: 048

REACTIONS (4)
  - BLOOD CHOLESTEROL INCREASED [None]
  - PRODUCT ADHESION ISSUE [None]
  - WRONG TECHNIQUE IN DRUG USAGE PROCESS [None]
  - INITIAL INSOMNIA [None]
